FAERS Safety Report 11496065 (Version 2)
Quarter: 2015Q4

REPORT INFORMATION
  Report Type: Spontaneous
  Country: US (occurrence: None)
  Receive Date: 20150911
  Receipt Date: 20151117
  Transmission Date: 20160304
  Serious: Yes (Other)
  Sender: FDA-Public Use
  Company Number: US-MDT-ADR-2015-01764

PATIENT
  Age: 60 Year
  Sex: Female

DRUGS (1)
  1. BACLOFEN INTRATHECAL 500 MCG/ML [Suspect]
     Active Substance: BACLOFEN
     Indication: MUSCLE SPASTICITY
     Dosage: 25.16 MCG/DAY

REACTIONS (4)
  - Overdose [None]
  - Performance status decreased [None]
  - Drug withdrawal syndrome [None]
  - Drug administration error [None]
